FAERS Safety Report 16984827 (Version 1)
Quarter: 2019Q4

REPORT INFORMATION
  Report Type: Spontaneous
  Country: IE (occurrence: IE)
  Receive Date: 20191101
  Receipt Date: 20191101
  Transmission Date: 20200122
  Serious: Yes (Hospitalization)
  Sender: FDA-Public Use
  Company Number: IE-SA-2019SA298566

PATIENT
  Age: 87 Year
  Sex: Male

DRUGS (1)
  1. STILNOCT [Suspect]
     Active Substance: ZOLPIDEM TARTRATE
     Dosage: UNK UNK, UNK
     Route: 048

REACTIONS (5)
  - Fall [Unknown]
  - Malaise [Unknown]
  - Limb injury [Unknown]
  - Wrong technique in product usage process [Unknown]
  - Drug ineffective [Unknown]
